FAERS Safety Report 17245809 (Version 1)
Quarter: 2020Q1

REPORT INFORMATION
  Report Type: Spontaneous
  Country: IT (occurrence: IT)
  Receive Date: 20200108
  Receipt Date: 20200108
  Transmission Date: 20200409
  Serious: Yes (Other)
  Sender: FDA-Public Use
  Company Number: IT-ROCHE-2513539

PATIENT

DRUGS (2)
  1. RITUXIMAB. [Suspect]
     Active Substance: RITUXIMAB
     Indication: PRODUCT USED FOR UNKNOWN INDICATION
     Route: 065
  2. IDELALISIB [Suspect]
     Active Substance: IDELALISIB
     Indication: PRODUCT USED FOR UNKNOWN INDICATION
     Route: 065

REACTIONS (3)
  - Hyperpyrexia [Unknown]
  - Diarrhoea [Unknown]
  - Transaminases increased [Unknown]
